FAERS Safety Report 8125646-9 (Version None)
Quarter: 2012Q1

REPORT INFORMATION
  Report Type: 
  Country: None (occurrence: None)
  Receive Date: 20120206
  Receipt Date: 20120125
  Transmission Date: 20120608
  Serious: Yes (Hospitalization)
  Sender: FDA-Public Use
  Company Number: S05-DEN-02626-02

PATIENT
  Age: 24 Hour
  Sex: Male
  Weight: 3.6 kg

DRUGS (3)
  1. CITALOPRAM HYDROBROMIDE [Suspect]
     Dosage: 60 MG (60 MG, 1 IN 1 D), TRANSPLACENTAL
     Route: 064
     Dates: end: 20050712
  2. TAFIL RETARD (ALPRAZOLAM) (2 DOSAGE FORMS, TABLETS) (ALPRAZOLAM) [Concomitant]
  3. OXAZEPAM (OXAZEPAM) (OXAZEPAM) [Concomitant]

REACTIONS (8)
  - MATERNAL DRUGS AFFECTING FOETUS [None]
  - NEONATAL ASPHYXIA [None]
  - IRRITABILITY [None]
  - DRUG WITHDRAWAL SYNDROME NEONATAL [None]
  - CYANOSIS NEONATAL [None]
  - NEONATAL RESPIRATORY DISTRESS SYNDROME [None]
  - HYPOTONIA NEONATAL [None]
  - TREMOR [None]
